FAERS Safety Report 22615616 (Version 2)
Quarter: 2023Q2

REPORT INFORMATION
  Report Type: Spontaneous
  Country: US (occurrence: US)
  Receive Date: 20230619
  Receipt Date: 20230619
  Transmission Date: 20230722
  Serious: Yes (Death, Life-Threatening, Hospitalization, Other)
  Sender: FDA-Public Use
  Company Number: US-JUBILANT CADISTA PHARMACEUTICALS-2023JUB00235

PATIENT
  Age: 68 Year
  Sex: Female

DRUGS (2)
  1. PREDNISONE [Suspect]
     Active Substance: PREDNISONE
     Dosage: 60 MG, EVERY 1 DAY; PROLONGED TAPER
  2. AZATHIOPRINE [Suspect]
     Active Substance: AZATHIOPRINE
     Indication: Autoimmune hepatitis
     Dosage: UNK
     Dates: start: 2015

REACTIONS (6)
  - Acute respiratory failure [Fatal]
  - Aspergillus infection [Fatal]
  - Pulmonary alveolar haemorrhage [Fatal]
  - Brain abscess [Fatal]
  - Endophthalmitis [Fatal]
  - Nocardiosis [Fatal]
